FAERS Safety Report 5888747 (Version 23)
Quarter: 2012Q4

REPORT INFORMATION
  Report Type: 
  Country: US (occurrence: US)
  Receive Date: 20050930
  Receipt Date: 20120831
  Transmission Date: 20130627
  Serious: Yes (Hospitalization, Other)
  Sender: FDA-Public Use
  Company Number: PHEH2005US10713

PATIENT
  Age: 56 None
  Sex: Male

DRUGS (29)
  1. AREDIA [Suspect]
     Dosage: 90 mg, QMO
     Route: 042
     Dates: start: 1996, end: 20011214
  2. ZOMETA [Suspect]
     Indication: MULTIPLE MYELOMA
     Dosage: 4 mg, QMO
     Route: 042
     Dates: start: 20020208, end: 20050421
  3. MELPHALAN [Concomitant]
     Indication: MULTIPLE MYELOMA
  4. PREDNISONE [Concomitant]
     Indication: MULTIPLE MYELOMA
  5. THALIDOMIDE [Concomitant]
     Indication: MULTIPLE MYELOMA
     Dates: start: 200402
  6. THALIDOMIDE [Concomitant]
     Dosage: 200 mg, QD
     Dates: start: 200406
  7. DECADRON [Concomitant]
     Indication: MULTIPLE MYELOMA
     Dates: start: 200402
  8. DECADRON [Concomitant]
     Dosage: 100 mg, QD
     Dates: start: 200406
  9. DECADRON [Concomitant]
     Dates: start: 200410
  10. WARFARIN [Concomitant]
     Indication: DEEP VEIN THROMBOSIS
  11. MEGACE [Concomitant]
     Indication: DECREASED APPETITE
  12. GERITOL /USA/ [Concomitant]
     Dates: end: 200407
  13. NEXIUM [Concomitant]
     Dosage: 40 mg
     Dates: end: 200407
  14. SENNA [Concomitant]
  15. PROTONIX ^WYETH-AYERST^ [Concomitant]
  16. METOCLOPRAMIDE [Concomitant]
  17. IMMUNOGLOBULINS [Concomitant]
  18. PROCRIT [Concomitant]
  19. CHEMOTHERAPEUTICS NOS [Concomitant]
  20. TYLENOL [Concomitant]
     Route: 048
     Dates: end: 200407
  21. HYDROCODONE W/ACETAMINOPHEN [Concomitant]
     Route: 048
     Dates: end: 200407
  22. PENICILLIN V [Concomitant]
     Route: 048
     Dates: start: 20031001, end: 200406
  23. MORPHINE SULFATE [Concomitant]
     Dates: start: 20040401, end: 200406
  24. ALKERAN [Concomitant]
  25. LEVAQUIN [Concomitant]
  26. ADVIL [Concomitant]
  27. ROBITUSSIN ^ROBINS^ [Concomitant]
  28. DARVOCET-N [Concomitant]
  29. CLARITIN [Concomitant]

REACTIONS (62)
  - Metastases to bone [Unknown]
  - Parotitis [Recovering/Resolving]
  - Parotid gland enlargement [Unknown]
  - Deep vein thrombosis [Recovering/Resolving]
  - Endotracheal intubation complication [Unknown]
  - Personality change [Recovering/Resolving]
  - Osteonecrosis of jaw [Recovered/Resolved]
  - Osteomyelitis [Recovering/Resolving]
  - Pyrexia [Unknown]
  - Swelling [Recovering/Resolving]
  - Pain in jaw [Recovering/Resolving]
  - Trismus [Recovering/Resolving]
  - Abscess [Recovering/Resolving]
  - Bone disorder [Unknown]
  - Pathological fracture [Recovering/Resolving]
  - Actinomycosis [Recovering/Resolving]
  - Inflammation [Recovering/Resolving]
  - Purulence [Recovering/Resolving]
  - Soft tissue inflammation [Unknown]
  - Oral infection [Recovering/Resolving]
  - Staphylococcal infection [Recovering/Resolving]
  - Decreased appetite [Recovering/Resolving]
  - Weight decreased [Recovering/Resolving]
  - Malignant neoplasm progression [Unknown]
  - Immunodeficiency [Recovering/Resolving]
  - Metastases to spine [Unknown]
  - Spinal compression fracture [Unknown]
  - Spinal disorder [Unknown]
  - Bone pain [Unknown]
  - Denture wearer [Unknown]
  - Constipation [Recovering/Resolving]
  - Decubitus ulcer [Recovering/Resolving]
  - Bronchitis [Recovering/Resolving]
  - Upper respiratory tract infection [Recovering/Resolving]
  - Productive cough [Recovering/Resolving]
  - Anaemia [Unknown]
  - Haemoglobin decreased [Unknown]
  - Asthenia [Unknown]
  - Back pain [Unknown]
  - Musculoskeletal chest pain [Recovering/Resolving]
  - Early satiety [Unknown]
  - Tooth deposit [Unknown]
  - Sinusitis [Unknown]
  - Dental caries [Unknown]
  - Retinal disorder [Unknown]
  - Visual acuity reduced [Unknown]
  - Cataract [Unknown]
  - Chorioretinal disorder [Unknown]
  - Chorioretinopathy [Unknown]
  - Coronary artery disease [Unknown]
  - Cardiac failure congestive [Unknown]
  - Cardiomyopathy [Unknown]
  - Blindness [Unknown]
  - Rhinorrhoea [Unknown]
  - Haematocrit decreased [Unknown]
  - Blood glucose increased [Unknown]
  - Vitreous floaters [Unknown]
  - Haematopoietic neoplasm [Unknown]
  - Dermatitis [Unknown]
  - Pneumothorax [Unknown]
  - Conjunctivitis [Unknown]
  - Periorbital oedema [Unknown]
